FAERS Safety Report 8239563-7 (Version None)
Quarter: 2012Q1

REPORT INFORMATION
  Report Type: 
  Country: None (occurrence: None)
  Receive Date: 20120328
  Receipt Date: 20120323
  Transmission Date: 20120608
  Serious: Yes (Death, Hospitalization)
  Sender: FDA-Public Use
  Company Number: DE-JNJFOC-20120211596

PATIENT
  Sex: Male

DRUGS (2)
  1. STELARA [Suspect]
     Indication: PSORIASIS
     Route: 058
     Dates: start: 20120109, end: 20120109
  2. STELARA [Suspect]
     Route: 058
     Dates: start: 20120208, end: 20120208

REACTIONS (11)
  - RENAL FUNCTION TEST ABNORMAL [None]
  - BLAST CELL CRISIS [None]
  - LIVER FUNCTION TEST ABNORMAL [None]
  - COAGULOPATHY [None]
  - SEPSIS [None]
  - BLOOD ALKALINE PHOSPHATASE INCREASED [None]
  - VOMITING [None]
  - MULTI-ORGAN FAILURE [None]
  - RENAL FAILURE ACUTE [None]
  - FATIGUE [None]
  - ACUTE LYMPHOCYTIC LEUKAEMIA [None]
